FAERS Safety Report 4947163-7 (Version None)
Quarter: 2006Q1

REPORT INFORMATION
  Report Type: 
  Country: None (occurrence: None)
  Receive Date: 20060317
  Receipt Date: 20060228
  Transmission Date: 20060701
  Serious: Yes (Other)
  Sender: FDA-Public Use
  Company Number: US-SANOFI-SYNTHELABO-A03200601111

PATIENT
  Age: 66 Year
  Sex: Male
  Weight: 97.7 kg

DRUGS (3)
  1. ELIGARD [Suspect]
     Indication: PROSTATE CANCER METASTATIC
     Route: 030
     Dates: start: 19931001
  2. BICALUTAMIDE [Suspect]
     Indication: PROSTATE CANCER METASTATIC
     Dosage: UNK
     Route: 048
     Dates: start: 19960901
  3. FLUTAMIDE [Concomitant]
     Dosage: UNK
     Route: 048
     Dates: start: 19931001

REACTIONS (1)
  - DIABETES MELLITUS [None]
